FAERS Safety Report 6694608-0 (Version None)
Quarter: 2010Q2

REPORT INFORMATION
  Report Type: 
  Country: None (occurrence: None)
  Receive Date: 20100423
  Receipt Date: 20100412
  Transmission Date: 20101027
  Serious: Yes (Other)
  Sender: FDA-Public Use
  Company Number: TW-PFIZER INC-2010050470

PATIENT
  Age: 30 Year
  Sex: Female

DRUGS (3)
  1. DOSTINEX [Suspect]
     Dosage: 0.5 MG/DAY
  2. BUSERELIN [Concomitant]
     Dosage: 0.5 MG/DAY
  3. CHORIONIC GONADOTROPIN [Concomitant]
     Dosage: 5000 IU, UNK

REACTIONS (1)
  - OVARIAN HYPERSTIMULATION SYNDROME [None]
